FAERS Safety Report 24744064 (Version 1)
Quarter: 2024Q4

REPORT INFORMATION
  Report Type: Spontaneous
  Country: JP (occurrence: JP)
  Receive Date: 20241217
  Receipt Date: 20241217
  Transmission Date: 20250115
  Serious: Yes (Other)
  Sender: ASTELLAS
  Company Number: JP-ASTELLAS-2024-AER-024484

PATIENT
  Age: 5 Decade
  Sex: Male

DRUGS (12)
  1. VYLOY [Suspect]
     Active Substance: ZOLBETUXIMAB-CLZB
     Indication: Product used for unknown indication
     Route: 065
     Dates: start: 20240828, end: 20240828
  2. VYLOY [Suspect]
     Active Substance: ZOLBETUXIMAB-CLZB
     Route: 065
     Dates: start: 20240919, end: 20240919
  3. VYLOY [Suspect]
     Active Substance: ZOLBETUXIMAB-CLZB
     Route: 065
     Dates: start: 20241031, end: 20241031
  4. VYLOY [Suspect]
     Active Substance: ZOLBETUXIMAB-CLZB
     Route: 065
     Dates: start: 20241128
  5. OXALIPLATIN [Concomitant]
     Active Substance: OXALIPLATIN
     Indication: Product used for unknown indication
     Route: 065
     Dates: start: 20240724
  6. OXALIPLATIN [Concomitant]
     Active Substance: OXALIPLATIN
     Dosage: ONE-STEP DOSE REDUCTION
     Route: 065
     Dates: start: 20241031, end: 20241031
  7. OXALIPLATIN [Concomitant]
     Active Substance: OXALIPLATIN
     Route: 065
     Dates: start: 20240703, end: 20240703
  8. OXALIPLATIN [Concomitant]
     Active Substance: OXALIPLATIN
     Route: 065
     Dates: start: 20241128
  9. XELODA [Concomitant]
     Active Substance: CAPECITABINE
     Indication: Product used for unknown indication
     Route: 065
     Dates: start: 20240724
  10. XELODA [Concomitant]
     Active Substance: CAPECITABINE
     Dosage: ONE-STEP DOSE REDUCTION
     Route: 065
     Dates: start: 20241031, end: 20241031
  11. XELODA [Concomitant]
     Active Substance: CAPECITABINE
     Dosage: FURTHER REDUCTION BY ONE STEP
     Route: 065
     Dates: start: 20241128
  12. XELODA [Concomitant]
     Active Substance: CAPECITABINE
     Route: 065
     Dates: start: 20240703, end: 20240703

REACTIONS (2)
  - Myelosuppression [Unknown]
  - Myelosuppression [Unknown]

NARRATIVE: CASE EVENT DATE: 20241009
